FAERS Safety Report 16084246 (Version 1)
Quarter: 2019Q1

REPORT INFORMATION
  Report Type: Spontaneous
  Country: US (occurrence: US)
  Receive Date: 20190318
  Receipt Date: 20190318
  Transmission Date: 20190418
  Serious: No
  Sender: FDA-Public Use
  Company Number: US-PFIZER INC-2019115783

PATIENT
  Sex: Male

DRUGS (1)
  1. VIAGRA [Suspect]
     Active Substance: SILDENAFIL CITRATE
     Dosage: UNK, [I TOOK ONE VIAGRA THEN TOOK ANOTHER SIX HOURS LATER]

REACTIONS (5)
  - Testicular swelling [Unknown]
  - Muscle spasms [Unknown]
  - Erectile dysfunction [Unknown]
  - Intentional overdose [Unknown]
  - Gait disturbance [Unknown]
